FAERS Safety Report 9596455 (Version 1)
Quarter: 2013Q4

REPORT INFORMATION
  Report Type: Spontaneous
  Country: US (occurrence: US)
  Receive Date: 20131004
  Receipt Date: 20131004
  Transmission Date: 20140711
  Serious: Yes (Other)
  Sender: FDA-Public Use
  Company Number: US-TEVA-435373USA

PATIENT
  Age: 33 Year
  Sex: Female
  Weight: 104.87 kg

DRUGS (1)
  1. PARAGARD 380A [Suspect]
     Indication: CONTRACEPTION
     Route: 015
     Dates: start: 20111209, end: 20130925

REACTIONS (3)
  - Device dislocation [Recovered/Resolved]
  - Uterine spasm [Unknown]
  - Vaginal discharge [Unknown]
